FAERS Safety Report 24873806 (Version 1)
Quarter: 2025Q1

REPORT INFORMATION
  Report Type: Spontaneous
  Country: US (occurrence: None)
  Receive Date: 20250121
  Receipt Date: 20250121
  Transmission Date: 20250409
  Serious: Yes (Hospitalization)
  Sender: FDA-CTU
  Company Number: None

PATIENT
  Age: 53 Year
  Sex: Male
  Weight: 112.8 kg

DRUGS (4)
  1. CEFAZOLIN [Suspect]
     Active Substance: CEFAZOLIN
     Indication: Prophylaxis
     Route: 042
     Dates: start: 20241219, end: 20241219
  2. CEFAZOLIN [Suspect]
     Active Substance: CEFAZOLIN
     Indication: Surgery
  3. CHLORAPREP [Suspect]
     Active Substance: CHLORHEXIDINE GLUCONATE\ISOPROPYL ALCOHOL
  4. PHENYLEPHRINE [Concomitant]
     Active Substance: PHENYLEPHRINE

REACTIONS (10)
  - Rash [None]
  - Bronchospasm [None]
  - Pulse absent [None]
  - Cardiac arrest [None]
  - Blood pressure decreased [None]
  - Anaphylactic reaction [None]
  - Drug hypersensitivity [None]
  - Tongue disorder [None]
  - Urticaria [None]
  - Urticaria [None]

NARRATIVE: CASE EVENT DATE: 20241219
